FAERS Safety Report 25414221 (Version 1)
Quarter: 2025Q2

REPORT INFORMATION
  Report Type: Spontaneous
  Country: IN (occurrence: IN)
  Receive Date: 20250609
  Receipt Date: 20250609
  Transmission Date: 20250716
  Serious: Yes (Death)
  Sender: PFIZER
  Company Number: IN-PFIZER INC-PV202400099180

PATIENT
  Age: 54 Year
  Sex: Male

DRUGS (2)
  1. CRIZOTINIB [Suspect]
     Active Substance: CRIZOTINIB
     Dosage: 250 MG, 2X/DAY
     Route: 048
     Dates: start: 202309
  2. CRIZOTINIB [Suspect]
     Active Substance: CRIZOTINIB
     Dosage: TAKEN 1 MEDICINE PER DAY INSTEAD OF 2
     Route: 048
     Dates: start: 202406

REACTIONS (3)
  - Death [Fatal]
  - Decreased appetite [Unknown]
  - Intentional product misuse [Unknown]

NARRATIVE: CASE EVENT DATE: 20240101
